FAERS Safety Report 19711424 (Version 1)
Quarter: 2021Q3

REPORT INFORMATION
  Report Type: Spontaneous
  Country: NL (occurrence: FR)
  Receive Date: 20210817
  Receipt Date: 20210817
  Transmission Date: 20211014
  Serious: Yes (Other)
  Sender: FDA-Public Use
  Company Number: FR-FRESENIUS KABI-FK202108440

PATIENT
  Age: 49 Year
  Sex: Female

DRUGS (3)
  1. MIVACURIUM CHLORIDE. [Suspect]
     Active Substance: MIVACURIUM CHLORIDE
     Indication: SKIN TEST
     Route: 058
     Dates: start: 20210707, end: 20210707
  2. ATRACURIUM [Suspect]
     Active Substance: ATRACURIUM
     Indication: SKIN TEST
     Route: 058
     Dates: start: 20210707, end: 20210707
  3. ROCURONIUM [Suspect]
     Active Substance: ROCURONIUM BROMIDE
     Indication: SKIN TEST
     Dosage: ROCURONIUM (BROMIDE)
     Route: 058
     Dates: start: 20210707, end: 20210707

REACTIONS (1)
  - Anaphylactic reaction [Recovered/Resolved]

NARRATIVE: CASE EVENT DATE: 20210707
